FAERS Safety Report 24760705 (Version 2)
Quarter: 2025Q1

REPORT INFORMATION
  Report Type: Spontaneous
  Country: RO (occurrence: RO)
  Receive Date: 20241220
  Receipt Date: 20250106
  Transmission Date: 20250409
  Serious: Yes (Death, Other)
  Sender: PFIZER
  Company Number: RO-OPELLA-2024OHG040254

PATIENT
  Sex: Male

DRUGS (7)
  1. CONTROLOC [Suspect]
     Active Substance: PANTOPRAZOLE SODIUM
     Indication: Biliary colic
     Route: 065
     Dates: start: 201708
  2. ASPIRIN [Suspect]
     Active Substance: ASPIRIN
     Indication: Biliary colic
     Route: 065
     Dates: start: 201708
  3. DROTAVERINE HYDROCHLORIDE [Suspect]
     Active Substance: DROTAVERINE HYDROCHLORIDE
     Indication: Biliary colic
     Route: 065
     Dates: start: 201708
  4. METOCLOPRAMIDE HYDROCHLORIDE ANHYDROUS [Suspect]
     Active Substance: METOCLOPRAMIDE HYDROCHLORIDE ANHYDROUS
     Indication: Biliary colic
     Route: 065
     Dates: start: 201708
  5. IBUPROFEN [Suspect]
     Active Substance: IBUPROFEN
     Indication: Biliary colic
     Route: 065
     Dates: start: 201708
  6. NEXIUM [Suspect]
     Active Substance: ESOMEPRAZOLE MAGNESIUM
     Indication: Biliary colic
     Route: 065
     Dates: start: 201708
  7. PANCREATIN [Suspect]
     Active Substance: PANCRELIPASE
     Indication: Biliary colic
     Route: 065
     Dates: start: 201708

REACTIONS (4)
  - Septic shock [Fatal]
  - Duodenal ulcer perforation [Fatal]
  - Peritonitis [Fatal]
  - Off label use [Unknown]

NARRATIVE: CASE EVENT DATE: 20170801
